FAERS Safety Report 9682721 (Version 2)
Quarter: 2013Q4

REPORT INFORMATION
  Report Type: Spontaneous
  Country: IT (occurrence: IT)
  Receive Date: 20131112
  Receipt Date: 20131112
  Transmission Date: 20140711
  Serious: Yes (Other)
  Sender: FDA-Public Use
  Company Number: IT-ASTRAZENECA-2013SE72541

PATIENT
  Sex: Male

DRUGS (3)
  1. CASODEX [Suspect]
     Indication: PROSTATE CANCER
     Route: 048
     Dates: start: 1999, end: 201304
  2. CASODEX [Suspect]
     Indication: PROSTATE CANCER
     Route: 048
  3. ENANTONE [Concomitant]
     Dosage: ENANTONE 11,25 MG/2ML IM VIALS, 1 DF EVERY 3 MONTHS
     Route: 030

REACTIONS (2)
  - Malignant neoplasm progression [Unknown]
  - Gynaecomastia [Unknown]
